FAERS Safety Report 6933949-6 (Version None)
Quarter: 2010Q3

REPORT INFORMATION
  Report Type: 
  Country: None (occurrence: None)
  Receive Date: 20100820
  Receipt Date: 20100811
  Transmission Date: 20110219
  Serious: No
  Sender: FDA-Public Use
  Company Number: US-PFIZER INC-2010101727

PATIENT
  Sex: Male
  Weight: 81 kg

DRUGS (2)
  1. XANAX [Suspect]
     Dosage: UNK
     Dates: start: 20100601, end: 20100804
  2. OXYCODONE [Concomitant]
     Indication: BACK PAIN
     Dosage: UNK

REACTIONS (2)
  - DRUG PRESCRIBING ERROR [None]
  - INSOMNIA [None]
